FAERS Safety Report 5021842-8 (Version None)
Quarter: 2006Q2

REPORT INFORMATION
  Report Type: 
  Country: None (occurrence: None)
  Receive Date: 20060609
  Receipt Date: 20060531
  Transmission Date: 20061013
  Serious: Yes (Other)
  Sender: FDA-Public Use
  Company Number: PHBS2006JP08287

PATIENT
  Age: 81 Year
  Sex: Female

DRUGS (5)
  1. LOCHOL [Suspect]
     Indication: HYPERCHOLESTEROLAEMIA
     Dosage: 30 MG/DAY
     Route: 048
     Dates: start: 20051101
  2. LAXOBERON [Concomitant]
     Route: 048
     Dates: start: 20051101
  3. PERSENNID [Concomitant]
     Dosage: UNK, UNK
     Route: 048
     Dates: start: 20051101
  4. ACTONEL [Concomitant]
     Route: 048
     Dates: start: 20051101
  5. VOLTAREN [Concomitant]
     Route: 054
     Dates: start: 20051101

REACTIONS (4)
  - BLOOD CREATINE PHOSPHOKINASE INCREASED [None]
  - CATHETERISATION CARDIAC [None]
  - CHEST PAIN [None]
  - LIVER DISORDER [None]
